FAERS Safety Report 18138678 (Version 1)
Quarter: 2020Q3

REPORT INFORMATION
  Report Type: Spontaneous
  Country: US (occurrence: US)
  Receive Date: 20200811
  Receipt Date: 20200811
  Transmission Date: 20201103
  Serious: Yes (Other)
  Sender: FDA-Public Use
  Company Number: None

PATIENT
  Age: 46 Year
  Sex: Female

DRUGS (1)
  1. REMDESIVIR. [Suspect]
     Active Substance: REMDESIVIR
     Indication: COVID-19
     Route: 042
     Dates: start: 20200717, end: 20200721

REACTIONS (5)
  - Atrioventricular block second degree [None]
  - Electrocardiogram T wave abnormal [None]
  - Sinus tachycardia [None]
  - Sinus arrhythmia [None]
  - Fibrin D dimer increased [None]

NARRATIVE: CASE EVENT DATE: 20200718
